FAERS Safety Report 26041414 (Version 1)
Quarter: 2025Q4

REPORT INFORMATION
  Report Type: Spontaneous
  Country: US (occurrence: None)
  Receive Date: 20251113
  Receipt Date: 20251113
  Transmission Date: 20260117
  Serious: Yes (Disabling)
  Sender: FDA-CTU
  Company Number: None

PATIENT
  Age: 33 Year
  Sex: Male
  Weight: 55 kg

DRUGS (1)
  1. SERTRALINE [Suspect]
     Active Substance: SERTRALINE HYDROCHLORIDE
     Indication: Sleep disorder
     Dosage: OTHER QUANTITY : 1 TABLET(S);?FREQUENCY : DAILY;?
     Route: 048
     Dates: start: 20220213, end: 20220226

REACTIONS (12)
  - Chills [None]
  - Change of bowel habit [None]
  - Dyschezia [None]
  - Excessive cerumen production [None]
  - Salivary hyposecretion [None]
  - Varicocele [None]
  - Dysuria [None]
  - Anal incontinence [None]
  - Loss of employment [None]
  - Nervous system disorder [None]
  - Sexual dysfunction [None]
  - Conversion disorder [None]

NARRATIVE: CASE EVENT DATE: 20220213
